FAERS Safety Report 10567271 (Version 21)
Quarter: 2018Q1

REPORT INFORMATION
  Report Type: Report from Study
  Country: CA (occurrence: CA)
  Receive Date: 20141106
  Receipt Date: 20180212
  Transmission Date: 20180508
  Serious: Yes (Hospitalization, Other)
  Sender: FDA-Public Use
  Company Number: CA-ROCHE-1231269

PATIENT
  Age: 79 Year
  Sex: Female
  Weight: 65.8 kg

DRUGS (16)
  1. TYLENOL [Concomitant]
     Active Substance: ACETAMINOPHEN
     Indication: PREMEDICATION
     Route: 048
     Dates: start: 20130528
  2. AMLODIPINE [Concomitant]
     Active Substance: AMLODIPINE BESYLATE
  3. TIAMOL [Concomitant]
  4. BENADRYL [Concomitant]
     Active Substance: DIPHENHYDRAMINE HYDROCHLORIDE
     Indication: PREMEDICATION
     Route: 048
     Dates: start: 20130528
  5. LEFLUNOMIDE. [Concomitant]
     Active Substance: LEFLUNOMIDE
  6. ANASTROZOLE. [Concomitant]
     Active Substance: ANASTROZOLE
  7. TYLENOL [Concomitant]
     Active Substance: ACETAMINOPHEN
     Route: 048
     Dates: start: 20130528
  8. ADVAIR HFA [Concomitant]
     Active Substance: FLUTICASONE PROPIONATE\SALMETEROL XINAFOATE
  9. RASILEZ [Concomitant]
     Active Substance: ALISKIREN
  10. ATORVASTATIN [Concomitant]
     Active Substance: ATORVASTATIN
  11. RITUXAN [Suspect]
     Active Substance: RITUXIMAB
     Indication: RHEUMATOID ARTHRITIS
     Dosage: LAST DOSE OF RITUXIMAB TAKEN ON 11/APR/2014?MOST RECENT DOSES ON 26/OCT/2016 AND 03/JUL/2017
     Route: 042
     Dates: start: 20130528
  12. PREDNISONE. [Concomitant]
     Active Substance: PREDNISONE
  13. ALENDRONATE [Concomitant]
     Active Substance: ALENDRONATE SODIUM
  14. SOLU-MEDROL [Concomitant]
     Active Substance: METHYLPREDNISOLONE SODIUM SUCCINATE
     Indication: PREMEDICATION
     Route: 042
     Dates: start: 20130528
  15. SPIRIVA [Concomitant]
     Active Substance: TIOTROPIUM BROMIDE MONOHYDRATE
  16. SYNTHROID [Concomitant]
     Active Substance: LEVOTHYROXINE SODIUM

REACTIONS (34)
  - Foot fracture [Recovering/Resolving]
  - Arterial occlusive disease [Unknown]
  - Vomiting [Recovering/Resolving]
  - Infusion related reaction [Unknown]
  - Pneumonia [Not Recovered/Not Resolved]
  - Anaemia [Unknown]
  - Blood pressure increased [Unknown]
  - Erythema [Recovered/Resolved]
  - Fatigue [Unknown]
  - Nausea [Recovering/Resolving]
  - Accident [Unknown]
  - Nausea [Recovered/Resolved]
  - Rhinorrhoea [Not Recovered/Not Resolved]
  - Lacrimation increased [Not Recovered/Not Resolved]
  - Heart rate decreased [Unknown]
  - Renal impairment [Unknown]
  - Tooth fracture [Unknown]
  - Blood pressure fluctuation [Unknown]
  - Blood pressure diastolic increased [Unknown]
  - Nasopharyngitis [Not Recovered/Not Resolved]
  - Oxygen saturation decreased [Unknown]
  - Arteriovenous fistula [Unknown]
  - Hand fracture [Recovering/Resolving]
  - Blood pressure fluctuation [Unknown]
  - Arteriovenous fistula occlusion [Unknown]
  - Fall [Unknown]
  - Blood pressure increased [Recovering/Resolving]
  - Face oedema [Recovered/Resolved]
  - Diarrhoea [Recovering/Resolving]
  - Headache [Recovering/Resolving]
  - Coronary artery occlusion [Unknown]
  - Dizziness [Recovered/Resolved]
  - Dry eye [Unknown]
  - Oxygen saturation decreased [Unknown]

NARRATIVE: CASE EVENT DATE: 20130529
